FAERS Safety Report 14663273 (Version 1)
Quarter: 2018Q1

REPORT INFORMATION
  Report Type: Spontaneous
  Country: US (occurrence: US)
  Receive Date: 20180319
  Receipt Date: 20180319
  Transmission Date: 20180509
  Serious: Yes (Life-Threatening, Hospitalization, Disabling, Other)
  Sender: FDA-Public Use
  Company Number: None

PATIENT

DRUGS (1)
  1. XIGDUO XR [Suspect]
     Active Substance: DAPAGLIFLOZIN PROPANEDIOL\METFORMIN HYDROCHLORIDE
     Indication: TYPE 2 DIABETES MELLITUS
     Dosage: 10-1000 (1) PILL ONCE DAILY MOUTH
     Route: 048
     Dates: start: 20151223, end: 20170522

REACTIONS (6)
  - Splenomegaly [None]
  - Hepatomegaly [None]
  - Abdominal pain [None]
  - Hepatic fibrosis [None]
  - Thrombocytopenia [None]
  - Hepatitis [None]

NARRATIVE: CASE EVENT DATE: 20170812
